FAERS Safety Report 6287465-8 (Version None)
Quarter: 2009Q3

REPORT INFORMATION
  Report Type: 
  Country: None (occurrence: None)
  Receive Date: 20090727
  Receipt Date: 20090720
  Transmission Date: 20100115
  Serious: Yes (Death)
  Sender: FDA-Public Use
  Company Number: 2008SP020839

PATIENT
  Age: 42 Year
  Sex: Male

DRUGS (2)
  1. TEMODAL [Suspect]
     Indication: BRAIN NEOPLASM
     Dosage: 100 MG; QD; PO
     Route: 048
     Dates: start: 20080701, end: 20080918
  2. PLASIL (METOCLOPRAMIDE) [Suspect]
     Indication: VOMITING

REACTIONS (3)
  - BRAIN NEOPLASM [None]
  - NEOPLASM PROGRESSION [None]
  - PNEUMONIA BACTERIAL [None]
